FAERS Safety Report 5767432-0 (Version None)
Quarter: 2008Q2

REPORT INFORMATION
  Report Type: 
  Country: None (occurrence: None)
  Receive Date: 20080612
  Receipt Date: 20080610
  Transmission Date: 20081010
  Serious: Yes (Other)
  Sender: FDA-Public Use
  Company Number: FR-BRISTOL-MYERS SQUIBB COMPANY-14207948

PATIENT
  Age: 63 Year
  Sex: Female
  Weight: 72 kg

DRUGS (2)
  1. TAXOL [Suspect]
     Indication: BREAST CANCER METASTATIC
     Dosage: RECEIVED 6 COURSES OF TAXOL-CARBOPLATIN-HERCEPTIN IN 2005.
     Route: 042
     Dates: start: 20080121, end: 20080421
  2. AVASTIN [Concomitant]
     Indication: BREAST CANCER METASTATIC
     Route: 042

REACTIONS (2)
  - ONYCHOLYSIS [None]
  - PALMAR-PLANTAR ERYTHRODYSAESTHESIA SYNDROME [None]
